FAERS Safety Report 9729433 (Version 1)
Quarter: 2013Q4

REPORT INFORMATION
  Report Type: Spontaneous
  Country: US (occurrence: US)
  Receive Date: 20131204
  Receipt Date: 20131204
  Transmission Date: 20140711
  Serious: No
  Sender: FDA-Public Use
  Company Number: US-GILEAD-2009-0021396

PATIENT
  Sex: Male
  Weight: 74.39 kg

DRUGS (20)
  1. LETAIRIS [Suspect]
     Indication: PULMONARY ARTERIAL HYPERTENSION
     Route: 048
     Dates: start: 20070912
  2. REMODULIN [Concomitant]
  3. VIAGRA [Concomitant]
  4. COUMADIN [Concomitant]
  5. FLONASE [Concomitant]
  6. ZYRTEC [Concomitant]
  7. ZANTAC [Concomitant]
  8. CLONIDINE [Concomitant]
  9. GABAPENTIN [Concomitant]
  10. AMITRIPTYLINE [Concomitant]
  11. KETAMINE [Concomitant]
  12. KETOPROFEN [Concomitant]
  13. ULTRAM [Concomitant]
  14. AMBIEN [Concomitant]
  15. PEPCID AC [Concomitant]
  16. IMODIUM [Concomitant]
  17. LIDOCAINE [Concomitant]
  18. LECITHIN [Concomitant]
  19. DAILY MULTIVITAMIN [Concomitant]
  20. POLOXAMER GEL [Concomitant]

REACTIONS (1)
  - Nasal congestion [Unknown]
